FAERS Safety Report 5574601-1 (Version None)
Quarter: 2007Q4

REPORT INFORMATION
  Report Type: 
  Country: None (occurrence: None)
  Receive Date: 20071227
  Receipt Date: 20071227
  Transmission Date: 20080405
  Serious: Yes (Other)
  Sender: FDA-Public Use
  Company Number: A0700465A

PATIENT
  Age: 26 Year
  Sex: Female

DRUGS (1)
  1. ALLI [Suspect]
     Indication: WEIGHT LOSS DIET
     Route: 048
     Dates: start: 20070101, end: 20070101

REACTIONS (4)
  - BRONCHITIS [None]
  - GASTROENTERITIS VIRAL [None]
  - HYPOAESTHESIA [None]
  - VIRAL INFECTION [None]
